FAERS Safety Report 14979653 (Version 5)
Quarter: 2018Q3

REPORT INFORMATION
  Report Type: Spontaneous
  Country: CA (occurrence: CA)
  Receive Date: 20180606
  Receipt Date: 20180723
  Transmission Date: 20181010
  Serious: Yes (Hospitalization, Other)
  Sender: FDA-Public Use
  Company Number: CA-CELLTRION INC.-2017CA017665

PATIENT

DRUGS (14)
  1. INFLECTRA [Suspect]
     Active Substance: INFLIXIMAB-DYYB
     Dosage: 300 MG, CYCLIC (EVERY 0, 2, 6 WEEKS, THEN EVERY 8 WEEKS)
     Route: 065
     Dates: start: 20171212, end: 20171212
  2. INFLECTRA [Suspect]
     Active Substance: INFLIXIMAB-DYYB
     Dosage: 435 MG, CYCLIC
     Route: 065
     Dates: start: 20180220, end: 20180220
  3. PREDNISONE. [Concomitant]
     Active Substance: PREDNISONE
     Indication: ATRIAL FIBRILLATION
     Dosage: 40 MG
     Route: 065
  4. TYLENOL [Concomitant]
     Active Substance: ACETAMINOPHEN
     Dosage: AS NEEDED
     Route: 065
  5. INFLECTRA [Suspect]
     Active Substance: INFLIXIMAB-DYYB
     Indication: CROHN^S DISEASE
     Dosage: 300 MG EVERY 0, 2, 6 WEEKS, THEN EVERY 8 WEEKS
     Route: 042
     Dates: start: 20171128, end: 20180109
  6. INFLECTRA [Suspect]
     Active Substance: INFLIXIMAB-DYYB
     Dosage: 435 MG, CYCLIC (EVERY 4 WEEKS)
     Route: 042
     Dates: start: 20180220, end: 20180220
  7. PREDNISONE. [Concomitant]
     Active Substance: PREDNISONE
     Dosage: (CURRENTLY TAPERING) STARTED AT 40 MG, AND CURRENTLY TAKING 25 MG
     Route: 065
  8. DEXILANT [Concomitant]
     Active Substance: DEXLANSOPRAZOLE
     Dosage: UNK
     Dates: start: 201711
  9. INFLECTRA [Suspect]
     Active Substance: INFLIXIMAB-DYYB
     Dosage: 435 MG, CYCLIC (EVERY 4 WEEKS)
     Route: 042
     Dates: start: 20180417
  10. METOPROLOL. [Concomitant]
     Active Substance: METOPROLOL
     Indication: ATRIAL FIBRILLATION
     Dosage: 25 MG
     Route: 065
  11. INFLECTRA [Suspect]
     Active Substance: INFLIXIMAB-DYYB
     Dosage: 435 MG, CYCLIC (EVERY 4 WEEKS)
     Route: 042
     Dates: start: 20180710
  12. INFLECTRA [Suspect]
     Active Substance: INFLIXIMAB-DYYB
     Dosage: 300 MG, CYCLIC (EVERY 0, 2 6 WEEKS, THEN EVERY 8 WEEKS)
     Route: 065
     Dates: start: 20180109, end: 20180109
  13. INFLECTRA [Suspect]
     Active Substance: INFLIXIMAB-DYYB
     Dosage: 435 MG, CYCLIC (EVERY 4 WEEKS)
     Route: 042
     Dates: start: 20180529, end: 2018
  14. INFLECTRA [Suspect]
     Active Substance: INFLIXIMAB-DYYB
     Dosage: 435 MG, CYCLIC (EVERY 4 WEEKS)
     Route: 042
     Dates: start: 20180320

REACTIONS (8)
  - Stoma site reaction [Unknown]
  - Drug ineffective [Unknown]
  - Procedural pain [Unknown]
  - Inappropriate schedule of drug administration [Unknown]
  - Product use issue [Unknown]
  - Product use issue [Unknown]
  - Appendicitis perforated [Unknown]
  - Condition aggravated [Unknown]

NARRATIVE: CASE EVENT DATE: 2017
